FAERS Safety Report 7673985-8 (Version None)
Quarter: 2011Q3

REPORT INFORMATION
  Report Type: 
  Country: None (occurrence: None)
  Receive Date: 20110810
  Receipt Date: 20101216
  Transmission Date: 20111222
  Serious: No
  Sender: FDA-Public Use
  Company Number: US-GLAXOSMITHKLINE-A0900720A

PATIENT
  Sex: Male

DRUGS (1)
  1. PAROXETINE HCL [Suspect]
     Indication: DEPRESSION
     Dates: start: 20070101

REACTIONS (3)
  - CONDITION AGGRAVATED [None]
  - DEPRESSION [None]
  - THERAPEUTIC RESPONSE DECREASED [None]
